FAERS Safety Report 10775087 (Version 1)
Quarter: 2015Q1

REPORT INFORMATION
  Report Type: Spontaneous
  Country: US (occurrence: None)
  Receive Date: 20150206
  Receipt Date: 20150206
  Transmission Date: 20150721
  Serious: Yes (Hospitalization)
  Sender: FDA-Public Use
  Company Number: HYP201305-000005

PATIENT
  Age: 14 Year
  Sex: Female
  Weight: 54.5 kg

DRUGS (3)
  1. CYCLINEX-2/DUOCAL FORMULA [Concomitant]
  2. RAVICTI [Suspect]
     Active Substance: GLYCEROL PHENYLBUTYRATE
     Indication: UREA CYCLE ENZYME DEFICIENCY
     Route: 048
     Dates: start: 20130425, end: 20130430
  3. ARGININE [Concomitant]
     Active Substance: ARGININE

REACTIONS (4)
  - Somnolence [None]
  - Irritability [None]
  - Hyperammonaemic crisis [None]
  - Decreased appetite [None]

NARRATIVE: CASE EVENT DATE: 20130428
